FAERS Safety Report 15791796 (Version 1)
Quarter: 2019Q1

REPORT INFORMATION
  Report Type: Spontaneous
  Country: US (occurrence: US)
  Receive Date: 20190105
  Receipt Date: 20190105
  Transmission Date: 20190417
  Serious: No
  Sender: FDA-Public Use
  Company Number: US-TEVA-2018-US-988260

PATIENT

DRUGS (1)
  1. EQ MICONAZOLE 3 [Suspect]
     Active Substance: MICONAZOLE
     Indication: ANTIFUNGAL TREATMENT
     Dates: end: 20181129

REACTIONS (1)
  - Drug ineffective [Unknown]

NARRATIVE: CASE EVENT DATE: 20181206
